FAERS Safety Report 5716930-4 (Version None)
Quarter: 2008Q2

REPORT INFORMATION
  Report Type: 
  Country: None (occurrence: None)
  Receive Date: 20080422
  Receipt Date: 20080415
  Transmission Date: 20081010
  Serious: Yes (Life-Threatening, Hospitalization)
  Sender: FDA-Public Use
  Company Number: 2008SP007229

PATIENT
  Age: 47 Year
  Sex: Male

DRUGS (3)
  1. CELESTAMINE (BETAMETHASONE/DEXCHLORPHENIRAMINE MALEATE) (BETAMETHASONE [Suspect]
     Indication: DRUG USE FOR UNKNOWN INDICATION
     Dosage: PO
     Route: 048
     Dates: start: 20060101
  2. TRANSAMIN [Concomitant]
  3. SEKISEED [Concomitant]

REACTIONS (2)
  - AGRANULOCYTOSIS [None]
  - PYREXIA [None]
